FAERS Safety Report 9924006 (Version 1)
Quarter: 2014Q1

REPORT INFORMATION
  Report Type: Spontaneous
  Country: FR (occurrence: FR)
  Receive Date: 20140225
  Receipt Date: 20140225
  Transmission Date: 20141002
  Serious: Yes (Hospitalization)
  Sender: FDA-Public Use
  Company Number: FR-B.I. PHARMACEUTICALS,INC./RIDGEFIELD-2014-BI-07576FF

PATIENT
  Age: 84 Year
  Sex: Female

DRUGS (2)
  1. PRADAXA [Suspect]
     Indication: CARDIAC FLUTTER
     Dosage: 220 MG
     Route: 048
     Dates: start: 20121005, end: 20130717
  2. ISOBAR [Concomitant]
     Route: 048
     Dates: end: 20131210

REACTIONS (1)
  - Renal failure [Not Recovered/Not Resolved]
